FAERS Safety Report 7937636-7 (Version None)
Quarter: 2011Q4

REPORT INFORMATION
  Report Type: 
  Country: None (occurrence: None)
  Receive Date: 20111123
  Receipt Date: 20111109
  Transmission Date: 20120403
  Serious: Yes (Hospitalization)
  Sender: FDA-Public Use
  Company Number: PHEH2011US08280

PATIENT
  Sex: Male

DRUGS (11)
  1. CATAPRES-TTS-3 [Concomitant]
     Dosage: UNK UKN, UNK
  2. ATIVAN [Concomitant]
     Dosage: 1 MG, AS NEEDED
  3. EPLERENONE [Concomitant]
     Dosage: 50 MG, BID
  4. LOPROX [Concomitant]
     Dosage: UNK UKN, UNK
  5. TASIGNA [Suspect]
  6. TASIGNA [Suspect]
     Dosage: 150 MG, QID
     Route: 048
  7. RANITIDINE HYDROCHLORIDE [Concomitant]
     Dosage: 1 MG, AS NEEDED
  8. NOVOLOG [Concomitant]
     Dosage: 250-300 UNITS PER DAY
  9. NITROGLYCERIN [Concomitant]
     Indication: PAIN
     Dosage: 4 MG, PRN
  10. PROMETHAZINE [Suspect]
     Indication: NAUSEA
     Dosage: 25 MG, Q5H
  11. PERCOCET [Concomitant]
     Dosage: UNK UKN, UNK

REACTIONS (14)
  - CHEST DISCOMFORT [None]
  - CHEST PAIN [None]
  - BLOOD GLUCOSE INCREASED [None]
  - NAUSEA [None]
  - HERPES ZOSTER [None]
  - GASTRIC DISORDER [None]
  - COUGH [None]
  - HYPOPNOEA [None]
  - PALPITATIONS [None]
  - DIARRHOEA [None]
  - HEADACHE [None]
  - RHINORRHOEA [None]
  - PRURITUS [None]
  - DIZZINESS [None]
